FAERS Safety Report 10073654 (Version 1)
Quarter: 2014Q2

REPORT INFORMATION
  Report Type: Spontaneous
  Country: BR (occurrence: BR)
  Receive Date: 20140411
  Receipt Date: 20140411
  Transmission Date: 20141212
  Serious: Yes (Death)
  Sender: FDA-Public Use
  Company Number: PHHY2014BR041158

PATIENT
  Age: 54 Year
  Sex: Male

DRUGS (2)
  1. ISONIAZID [Suspect]
     Indication: LATENT TUBERCULOSIS
     Dosage: 300 MG/DAY
     Route: 048
  2. ISONIAZID [Suspect]
     Indication: EXTRAPULMONARY TUBERCULOSIS

REACTIONS (2)
  - Death [Fatal]
  - Pruritus [Unknown]
